FAERS Safety Report 5037086-X (Version None)
Quarter: 2006Q2

REPORT INFORMATION
  Report Type: 
  Country: None (occurrence: None)
  Receive Date: 20060623
  Receipt Date: 20060614
  Transmission Date: 20061013
  Serious: Yes (Hospitalization)
  Sender: FDA-Public Use
  Company Number: 2006076319

PATIENT
  Age: 34 Year
  Sex: Female

DRUGS (2)
  1. SULFASALAZINE [Suspect]
     Indication: DRUG USE FOR UNKNOWN INDICATION
     Dosage: 3 GRAM (DAILY), ORAL
     Route: 048
     Dates: start: 20060424, end: 20060516
  2. PREDNISONE TAB [Concomitant]

REACTIONS (4)
  - DRUG TOXICITY [None]
  - PRURITUS [None]
  - RASH PAPULAR [None]
  - THROMBOCYTOPENIA [None]
